FAERS Safety Report 5816899-8 (Version None)
Quarter: 2008Q3

REPORT INFORMATION
  Report Type: 
  Country: None (occurrence: None)
  Receive Date: 20080722
  Receipt Date: 20080709
  Transmission Date: 20090109
  Serious: Yes (Other)
  Sender: FDA-Public Use
  Company Number: IN-SP-2008-02212

PATIENT
  Age: 21 Year
  Sex: Female

DRUGS (2)
  1. IMMUNOGLOBULIN HUMAN ANTIRABIES [Suspect]
     Indication: IMMUNISATION
     Route: 065
  2. PURIFIED CHICK EMBRYO CELL (PCEC) VACCINE [Suspect]
     Indication: IMMUNISATION
     Route: 065

REACTIONS (4)
  - MUSCULAR WEAKNESS [None]
  - MUSCULOSKELETAL STIFFNESS [None]
  - MYELITIS [None]
  - NECK PAIN [None]
